FAERS Safety Report 9703227 (Version 3)
Quarter: 2013Q4

REPORT INFORMATION
  Report Type: Report from Study
  Country: CO (occurrence: CO)
  Receive Date: 20131122
  Receipt Date: 20131206
  Transmission Date: 20140711
  Serious: Yes (Hospitalization)
  Sender: FDA-Public Use
  Company Number: CO-ROCHE-1301978

PATIENT
  Age: 75 Year
  Sex: Male

DRUGS (1)
  1. CELLCEPT [Suspect]
     Indication: RENAL TRANSPLANT
     Route: 048
     Dates: start: 19901012

REACTIONS (2)
  - Hypercreatinaemia [Not Recovered/Not Resolved]
  - Kidney transplant rejection [Not Recovered/Not Resolved]
